FAERS Safety Report 26061711 (Version 1)
Quarter: 2025Q4

REPORT INFORMATION
  Report Type: Spontaneous
  Country: EU (occurrence: EU)
  Receive Date: 20251118
  Receipt Date: 20251118
  Transmission Date: 20260117
  Serious: Yes (Death, Life-Threatening, Other)
  Sender: AUROBINDO
  Company Number: EU-AFSSAPS-RE2025000624

PATIENT
  Age: 67 Year
  Sex: Male
  Weight: 82 kg

DRUGS (10)
  1. METHOTREXATE [Suspect]
     Active Substance: METHOTREXATE
     Indication: Sarcoidosis
     Dosage: 15 MILLIGRAM, UNK
     Dates: start: 20250423, end: 20250529
  2. PREDNISONE [Suspect]
     Active Substance: PREDNISONE
     Indication: Sarcoidosis
     Dosage: 500 MILLIGRAM, ONCE A DAY
     Dates: start: 20250321, end: 20250324
  3. PREDNISONE [Suspect]
     Active Substance: PREDNISONE
     Dosage: 70 MILLIGRAM, ONCE A DAY
     Dates: start: 20250324, end: 20250507
  4. PREDNISONE [Suspect]
     Active Substance: PREDNISONE
     Dosage: 60 MILLIGRAM, ONCE A DAY
     Dates: start: 20250508, end: 20250521
  5. PREDNISONE [Suspect]
     Active Substance: PREDNISONE
     Dosage: 50 MILLIGRAM, ONCE A DAY
     Dates: start: 20250522
  6. COVERAM [Concomitant]
     Active Substance: AMLODIPINE\PERINDOPRIL
     Indication: Product used for unknown indication
     Dosage: UNK
     Route: 065
  7. BISOPROLOL FUMARATE [Concomitant]
     Active Substance: BISOPROLOL FUMARATE
     Indication: Product used for unknown indication
     Dosage: UNK
     Route: 065
  8. DORZOLAMIDE HYDROCHLORIDE\TIMOLOL MALEATE [Concomitant]
     Active Substance: DORZOLAMIDE HYDROCHLORIDE\TIMOLOL MALEATE
     Indication: Product used for unknown indication
     Dosage: UNK
     Route: 065
  9. LATANOPROST [Concomitant]
     Active Substance: LATANOPROST
     Indication: Product used for unknown indication
     Dosage: UNK
     Route: 065
  10. FOLIC ACID [Concomitant]
     Active Substance: FOLIC ACID
     Indication: Product used for unknown indication
     Dosage: UNK
     Route: 065

REACTIONS (2)
  - Pneumocystis jirovecii pneumonia [Fatal]
  - Secondary immunodeficiency [Fatal]

NARRATIVE: CASE EVENT DATE: 20250528
